FAERS Safety Report 7502456-4 (Version None)
Quarter: 2011Q2

REPORT INFORMATION
  Report Type: 
  Country: None (occurrence: None)
  Receive Date: 20110525
  Receipt Date: 20110518
  Transmission Date: 20111010
  Serious: Yes (Other)
  Sender: FDA-Public Use
  Company Number: AR-BRISTOL-MYERS SQUIBB COMPANY-15758741

PATIENT
  Age: 61 Year
  Sex: Female

DRUGS (1)
  1. IXEMPRA KIT [Suspect]
     Dosage: SIX CHEMOTHERAPY CYCLE

REACTIONS (4)
  - HYPERSENSITIVITY [None]
  - GAIT DISTURBANCE [None]
  - SENSORY LOSS [None]
  - INFLAMMATION [None]
